FAERS Safety Report 7927496-2 (Version None)
Quarter: 2011Q4

REPORT INFORMATION
  Report Type: 
  Country: None (occurrence: None)
  Receive Date: 20111118
  Receipt Date: 20111111
  Transmission Date: 20120403
  Serious: Yes (Hospitalization, Other)
  Sender: FDA-Public Use
  Company Number: US-AMGEN-USASP2011059727

PATIENT
  Age: 41 Year
  Sex: Female

DRUGS (1)
  1. ENBREL [Suspect]
     Indication: PSORIASIS
     Dosage: 25 MG, 2 TIMES/WK
     Dates: start: 20010101

REACTIONS (7)
  - CHOLECYSTECTOMY [None]
  - DYSPNOEA [None]
  - APHAGIA [None]
  - GASTRIC BYPASS [None]
  - PSORIASIS [None]
  - INJECTION SITE PAIN [None]
  - FACIAL BONES FRACTURE [None]
